FAERS Safety Report 4329621-1 (Version None)
Quarter: 2004Q2

REPORT INFORMATION
  Report Type: 
  Country: None (occurrence: None)
  Receive Date: 20040401
  Receipt Date: 20040323
  Transmission Date: 20050107
  Serious: Yes (Hospitalization)
  Sender: FDA-Public Use
  Company Number: JP-ROCHE-362674

PATIENT
  Age: 24 Year
  Sex: Female

DRUGS (1)
  1. TAMIFLU [Suspect]
     Route: 048
     Dates: start: 20040227, end: 20040227

REACTIONS (2)
  - ANAPHYLACTIC REACTION [None]
  - URTICARIA [None]
